APPROVED DRUG PRODUCT: ESOMEPRAZOLE MAGNESIUM
Active Ingredient: ESOMEPRAZOLE MAGNESIUM
Strength: EQ 20MG BASE
Dosage Form/Route: CAPSULE, DELAYED REL PELLETS;ORAL
Application: A209495 | Product #001
Applicant: GLENMARK SPECIALTY SA
Approved: May 10, 2019 | RLD: No | RS: No | Type: DISCN